FAERS Safety Report 5194926-1 (Version None)
Quarter: 2006Q4

REPORT INFORMATION
  Report Type: 
  Country: None (occurrence: None)
  Receive Date: 20061229
  Receipt Date: 20061004
  Transmission Date: 20070319
  Serious: No
  Sender: FDA-Public Use
  Company Number: US-BRISTOL-MYERS SQUIBB COMPANY-13530134

PATIENT
  Age: 53 Year
  Sex: Female
  Weight: 84 kg

DRUGS (8)
  1. SPRYCEL [Suspect]
     Indication: CHRONIC MYELOID LEUKAEMIA
     Route: 048
     Dates: start: 20060928, end: 20061001
  2. ESTRADIOL VALERATE [Concomitant]
     Route: 061
  3. FAMOTIDINE [Concomitant]
  4. HYDROCODONE + ACETAMINOPHEN [Concomitant]
  5. CLONAZEPAM [Concomitant]
  6. FOLIC ACID [Concomitant]
  7. FENTANYL TRANSDERMAL SYSTEM [Concomitant]
  8. PROCHLORPERAZINE [Concomitant]

REACTIONS (6)
  - DIZZINESS [None]
  - FATIGUE [None]
  - HEADACHE [None]
  - NAUSEA [None]
  - SWELLING FACE [None]
  - VISION BLURRED [None]
